FAERS Safety Report 5860376-5 (Version None)
Quarter: 2008Q3

REPORT INFORMATION
  Report Type: 
  Country: None (occurrence: None)
  Receive Date: 20080827
  Receipt Date: 20080821
  Transmission Date: 20090109
  Serious: Yes (Other)
  Sender: FDA-Public Use
  Company Number: JP-ASTRAZENECA-2008AP06538

PATIENT
  Age: 54 Year
  Sex: Male
  Weight: 66 kg

DRUGS (1)
  1. ANAPEINE INJECTION 7.5 MG/ML [Suspect]
     Indication: NERVE BLOCK
     Route: 053

REACTIONS (1)
  - CLONIC CONVULSION [None]
